FAERS Safety Report 18383119 (Version 1)
Quarter: 2020Q4

REPORT INFORMATION
  Report Type: Report from Study
  Country: JP (occurrence: JP)
  Receive Date: 20201014
  Receipt Date: 20201014
  Transmission Date: 20210114
  Serious: Yes (Hospitalization, Other)
  Sender: FDA-Public Use
  Company Number: JP-JNJFOC-A-CH2017-155577

PATIENT
  Age: 20 Year
  Sex: Female
  Weight: 43 kg

DRUGS (28)
  1. UPTRAVI [Suspect]
     Active Substance: SELEXIPAG
     Dosage: 0.8 MG, BID
     Route: 048
     Dates: start: 20170417, end: 20170719
  2. ADEMPAS [Concomitant]
     Active Substance: RIOCIGUAT
     Indication: PULMONARY ARTERIAL HYPERTENSION
     Dosage: UNK
     Dates: start: 20170302
  3. UPTRAVI [Suspect]
     Active Substance: SELEXIPAG
     Dosage: 0.4 MG, BID
     Route: 048
     Dates: start: 20170318, end: 20170329
  4. UPTRAVI [Suspect]
     Active Substance: SELEXIPAG
     Dosage: 0.8 MG, BID
     Route: 048
     Dates: start: 20170406, end: 20170412
  5. UPTRAVI [Suspect]
     Active Substance: SELEXIPAG
     Dosage: 1.0 MG, BID
     Route: 048
     Dates: start: 20170720, end: 20170802
  6. TREPROST [Suspect]
     Active Substance: TREPROSTINIL
     Dosage: 12 NG/KG, PER MIN
     Route: 042
  7. ALDACTONE A [Concomitant]
     Active Substance: SPIRONOLACTONE
     Dosage: 25 MG, QD
     Dates: start: 20190601
  8. OPSUMIT [Suspect]
     Active Substance: MACITENTAN
     Indication: PULMONARY ARTERIAL HYPERTENSION
     Dosage: 10 MG, QD
     Route: 048
     Dates: start: 20170301
  9. UPTRAVI [Suspect]
     Active Substance: SELEXIPAG
     Dosage: 0.6 MG, BID
     Route: 048
     Dates: start: 20170330, end: 20170405
  10. UPTRAVI [Suspect]
     Active Substance: SELEXIPAG
     Dosage: 1.2 MG, BID
     Route: 048
     Dates: start: 20170803, end: 20170816
  11. EPOPROSTENOL ACT [Suspect]
     Active Substance: EPOPROSTENOL
     Indication: PULMONARY ARTERIAL HYPERTENSION
     Dosage: 40 NG/KG, PER MIN
     Route: 042
     Dates: start: 20171205
  12. TREPROST [Suspect]
     Active Substance: TREPROSTINIL
     Indication: PULMONARY ARTERIAL HYPERTENSION
     Dosage: 15 NG/KG, PER MIN
     Route: 042
     Dates: start: 20170519, end: 20171205
  13. LENDORMIN [Concomitant]
     Active Substance: BROTIZOLAM
  14. LASIX [Concomitant]
     Active Substance: FUROSEMIDE
     Dosage: 20 MG, QD
     Dates: start: 20190601
  15. UPTRAVI [Suspect]
     Active Substance: SELEXIPAG
     Dosage: 0.2 MG, BID
     Route: 048
     Dates: start: 20170314, end: 20170317
  16. UPTRAVI [Suspect]
     Active Substance: SELEXIPAG
     Dosage: 1.0 MG, BID
     Route: 048
     Dates: start: 20170413, end: 20170416
  17. UPTRAVI [Suspect]
     Active Substance: SELEXIPAG
     Dosage: 1.4 MG, BID
     Route: 048
     Dates: start: 20170817, end: 20170830
  18. HIRUDOID [Concomitant]
     Active Substance: GLYCOSAMINOGLYCANS
     Indication: INFUSION SITE DRYNESS
     Dosage: UNK
     Dates: start: 20171108
  19. OPSUMIT [Suspect]
     Active Substance: MACITENTAN
     Dosage: 10 MG, QD
     Route: 048
  20. EPOPROSTENOL ACT [Suspect]
     Active Substance: EPOPROSTENOL
     Dosage: 100 NG/KG, PER MIN
     Route: 042
  21. ADEMPAS [Concomitant]
     Active Substance: RIOCIGUAT
     Dosage: UNK
  22. UPTRAVI [Suspect]
     Active Substance: SELEXIPAG
     Dosage: 1.6 MG, BID
     Route: 048
     Dates: start: 20170831
  23. EPOPROSTENOL ACT [Suspect]
     Active Substance: EPOPROSTENOL
     Dosage: 52 NG/KG, PER MIN
     Route: 042
  24. EPOPROSTENOL ACT [Suspect]
     Active Substance: EPOPROSTENOL
     Dosage: 140 NG/KG PER MIN
     Route: 042
  25. TREPROST [Suspect]
     Active Substance: TREPROSTINIL
     Dosage: 86 NG/KG, PER MIN
     Route: 042
     Dates: end: 20171205
  26. UPTRAVI [Suspect]
     Active Substance: SELEXIPAG
     Indication: PULMONARY ARTERIAL HYPERTENSION
     Dosage: 0.4 MG, BID
     Route: 048
     Dates: start: 20170310, end: 20170311
  27. TREPROST [Suspect]
     Active Substance: TREPROSTINIL
     Dosage: 50 NG/KG, PER MIN
     Route: 042
  28. ADEMPAS [Concomitant]
     Active Substance: RIOCIGUAT
     Dosage: 7.5 MG, QD

REACTIONS (18)
  - Pyrexia [Recovered/Resolved]
  - Puncture site pain [Recovering/Resolving]
  - Arthralgia [Recovering/Resolving]
  - Eczema [Recovering/Resolving]
  - Dermatitis contact [Recovering/Resolving]
  - Vomiting [Recovered/Resolved]
  - Oedema peripheral [Recovering/Resolving]
  - Clostridium test positive [Recovering/Resolving]
  - Catheter site discharge [Recovering/Resolving]
  - Diarrhoea [Recovered/Resolved]
  - Staphylococcal infection [Recovering/Resolving]
  - Infusion site dryness [Recovering/Resolving]
  - Excessive granulation tissue [Recovering/Resolving]
  - Pain [Recovering/Resolving]
  - Headache [Recovered/Resolved]
  - Nausea [Recovering/Resolving]
  - Catheter site infection [Recovering/Resolving]
  - Decubitus ulcer [Recovering/Resolving]

NARRATIVE: CASE EVENT DATE: 20170310
